FAERS Safety Report 9026109 (Version 2)
Quarter: 2013Q1

REPORT INFORMATION
  Report Type: Spontaneous
  Country: FR (occurrence: None)
  Receive Date: 20130107
  Receipt Date: 20130116
  Transmission Date: 20140127
  Serious: Yes (Hospitalization)
  Sender: FDA-Public Use
  Company Number: 2013CP000001

PATIENT
  Age: 9 Year
  Sex: Female

DRUGS (10)
  1. PERFALGAN [Suspect]
     Indication: PYREXIA
     Route: 042
     Dates: start: 20120924, end: 20120925
  2. BRISTOPEN [Suspect]
     Indication: ABSCESS
     Dates: start: 20121005, end: 20121011
  3. AMIKACIN SULFATE [Suspect]
     Indication: ABSCESS
     Dates: start: 20121002, end: 20121004
  4. CODENFAN [Suspect]
     Indication: PAIN
     Dates: start: 20120924, end: 20120925
  5. COLCHICINE (COLCHICINE) [Suspect]
     Indication: PERICARDITIS
     Route: 048
     Dates: start: 20121002, end: 20121024
  6. CLINDAMYCIN [Suspect]
     Indication: ABSCESS
     Dates: start: 20121002, end: 20121024
  7. AMOXICILLIN (AMOXICILLIN) [Suspect]
     Indication: ABSCESS
     Dates: start: 20121002, end: 20121005
  8. ORBENINE [Suspect]
     Indication: ABSCESS
     Dates: start: 20121011, end: 20121024
  9. RIFAMPICIN [Suspect]
     Indication: ABSCESS
     Dates: start: 20121025, end: 20121029
  10. CLAVULANATE POTASSIUM [Suspect]
     Dates: start: 20121002, end: 20121005

REACTIONS (2)
  - Drug reaction with eosinophilia and systemic symptoms [None]
  - Hepatocellular injury [None]
